FAERS Safety Report 7769173-7 (Version None)
Quarter: 2011Q3

REPORT INFORMATION
  Report Type: 
  Country: None (occurrence: None)
  Receive Date: 20110922
  Receipt Date: 20110914
  Transmission Date: 20111222
  Serious: Yes (Other)
  Sender: FDA-Public Use
  Company Number: US-ROCHE-743270

PATIENT
  Sex: Female
  Weight: 66.7 kg

DRUGS (14)
  1. ACCUTANE [Suspect]
     Route: 048
     Dates: start: 19950804
  2. ACCUTANE [Suspect]
     Route: 048
  3. IBUPROFEN [Concomitant]
  4. ACCUTANE [Suspect]
     Route: 048
     Dates: start: 19940415
  5. ACCUTANE [Suspect]
     Route: 048
     Dates: start: 19960101
  6. ACCUTANE [Suspect]
     Route: 048
     Dates: start: 19970514
  7. ACCUTANE [Suspect]
     Route: 048
     Dates: start: 20030527
  8. ALBUTEROL [Concomitant]
     Indication: ASTHMA
  9. ACCUTANE [Suspect]
     Route: 048
     Dates: end: 20040301
  10. ACCUTANE [Suspect]
     Indication: ACNE
     Route: 048
     Dates: start: 19930419
  11. AMNESTEEM [Suspect]
     Indication: ACNE
     Route: 065
     Dates: start: 20030611, end: 20030930
  12. XANAX [Concomitant]
     Indication: ANXIETY
  13. ALLEGRA [Concomitant]
  14. ACCUTANE [Suspect]
     Route: 048
     Dates: start: 20020701

REACTIONS (24)
  - DIVERTICULUM [None]
  - PSORIASIS [None]
  - HORDEOLUM [None]
  - IRRITABLE BOWEL SYNDROME [None]
  - STRESS [None]
  - DEPRESSION [None]
  - EPISTAXIS [None]
  - MYALGIA [None]
  - RHINITIS ALLERGIC [None]
  - INFLAMMATORY BOWEL DISEASE [None]
  - LIP DRY [None]
  - DRY SKIN [None]
  - MUSCULOSKELETAL STIFFNESS [None]
  - BRONCHITIS [None]
  - SUNBURN [None]
  - UPPER-AIRWAY COUGH SYNDROME [None]
  - RHINITIS [None]
  - BACK PAIN [None]
  - ECZEMA NUMMULAR [None]
  - ARTHRALGIA [None]
  - OTITIS EXTERNA [None]
  - COLITIS ULCERATIVE [None]
  - BLOOD CHOLESTEROL INCREASED [None]
  - PHARYNGITIS [None]
